FAERS Safety Report 20391644 (Version 6)
Quarter: 2024Q3

REPORT INFORMATION
  Report Type: Spontaneous
  Country: US (occurrence: US)
  Receive Date: 20220128
  Receipt Date: 20240701
  Transmission Date: 20241017
  Serious: No
  Sender: PFIZER
  Company Number: US-PFIZER INC-202101882998

PATIENT
  Age: 75 Year
  Sex: Female

DRUGS (2)
  1. IBRANCE [Suspect]
     Active Substance: PALBOCICLIB
     Indication: Breast cancer female
     Dosage: 125 MG
  2. IBRANCE [Suspect]
     Active Substance: PALBOCICLIB
     Dosage: 75 MG, CYCLIC [TAKE 1 TABLET (75 MG TOTAL) BY MOUTH IN THE MORNING. TAKE 3 WEEKS ON 2 WEEKS OFF)

REACTIONS (5)
  - White blood cell count decreased [Unknown]
  - Infection [Unknown]
  - Urinary tract infection [Unknown]
  - Off label use [Unknown]
  - Product use issue [Unknown]
